FAERS Safety Report 5280446-2 (Version None)
Quarter: 2007Q1

REPORT INFORMATION
  Report Type: 
  Country: None (occurrence: None)
  Receive Date: 20070329
  Receipt Date: 20070322
  Transmission Date: 20070707
  Serious: Yes (Hospitalization)
  Sender: FDA-Public Use
  Company Number: ES-AVENTIS-200711517EU

PATIENT
  Age: 85 Year
  Sex: Female

DRUGS (4)
  1. SEGURIL                            /00032601/ [Suspect]
     Route: 048
     Dates: end: 20040224
  2. ALDACTONE [Suspect]
     Route: 048
     Dates: end: 20040211
  3. ATENOLOL [Concomitant]
     Route: 048
     Dates: end: 20040224
  4. ASPIRIN [Concomitant]
     Indication: PROPHYLAXIS
     Route: 048

REACTIONS (1)
  - RENAL FAILURE ACUTE [None]
